FAERS Safety Report 11097069 (Version 2)
Quarter: 2015Q2

REPORT INFORMATION
  Report Type: Spontaneous
  Country: CA (occurrence: CA)
  Receive Date: 20150507
  Receipt Date: 20150605
  Transmission Date: 20150821
  Serious: Yes (Life-Threatening, Hospitalization, Other)
  Sender: FDA-Public Use
  Company Number: CA-ASTRAZENECA-2015SE40492

PATIENT
  Age: 51 Year
  Sex: Female

DRUGS (5)
  1. SYNTHROID [Concomitant]
     Active Substance: LEVOTHYROXINE SODIUM
  2. MELOXICAM. [Concomitant]
     Active Substance: MELOXICAM
  3. FORXIGA [Suspect]
     Active Substance: DAPAGLIFLOZIN
     Route: 048
     Dates: end: 20150421
  4. TRAZODONE [Concomitant]
     Active Substance: TRAZODONE HYDROCHLORIDE
  5. OTHER UNSPECIFIED DRUGS [Concomitant]
     Active Substance: UNSPECIFIED INGREDIENT

REACTIONS (8)
  - Gastroenteritis norovirus [Unknown]
  - Renal tubular necrosis [Unknown]
  - Malaise [Not Recovered/Not Resolved]
  - Hypovolaemic shock [Unknown]
  - Cardiac arrest [Recovered/Resolved]
  - Acidosis [Recovered/Resolved]
  - Diarrhoea [Unknown]
  - Acute kidney injury [Unknown]
